FAERS Safety Report 4471781-6 (Version None)
Quarter: 2004Q4

REPORT INFORMATION
  Report Type: 
  Country: None (occurrence: None)
  Receive Date: 20041006
  Receipt Date: 20040923
  Transmission Date: 20050328
  Serious: Yes (Other)
  Sender: FDA-Public Use
  Company Number: 2004235228SE

PATIENT
  Sex: Male

DRUGS (3)
  1. GENOTROPIN [Suspect]
     Indication: BODY HEIGHT BELOW NORMAL
     Dates: start: 19890101
  2. CYCLOSPORINE [Concomitant]
  3. PREDNISOLONE [Concomitant]

REACTIONS (4)
  - KIDNEY TRANSPLANT REJECTION [None]
  - RENAL ARTERITIS [None]
  - RENAL HAEMORRHAGE [None]
  - RENAL INTERSTITIAL FIBROSIS [None]
